FAERS Safety Report 5763404-0 (Version None)
Quarter: 2008Q2

REPORT INFORMATION
  Report Type: 
  Country: None (occurrence: None)
  Receive Date: 20080604
  Receipt Date: 20080604
  Transmission Date: 20081010
  Serious: Yes (Other)
  Sender: FDA-Public Use
  Company Number: None

PATIENT
  Age: 57 Year
  Sex: Female
  Weight: 86.1834 kg

DRUGS (1)
  1. ZYRTEC [Suspect]
     Indication: HYPERSENSITIVITY
     Dosage: 10 MGS DAILY
     Dates: start: 20000210, end: 20080603

REACTIONS (4)
  - DRUG DEPENDENCE [None]
  - PRURITUS [None]
  - SKIN HAEMORRHAGE [None]
  - URTICARIA [None]
